FAERS Safety Report 6188319-8 (Version None)
Quarter: 2009Q2

REPORT INFORMATION
  Report Type: 
  Country: None (occurrence: None)
  Receive Date: 20090513
  Receipt Date: 20090506
  Transmission Date: 20091009
  Serious: Yes (Death)
  Sender: FDA-Public Use
  Company Number: US-GILEAD-2009-0021842

PATIENT
  Sex: Female
  Weight: 45.037 kg

DRUGS (11)
  1. LETAIRIS [Suspect]
     Indication: PULMONARY ARTERIAL HYPERTENSION
     Route: 048
     Dates: start: 20090107
  2. REMODULIN [Concomitant]
  3. REVATIO [Concomitant]
  4. OXYGEN [Concomitant]
  5. ADVAIR 250-50 DISKUS [Concomitant]
  6. POTASSIUM CHLORIDE [Concomitant]
  7. OMEPRAZOLE [Concomitant]
  8. SYNTHROID [Concomitant]
  9. TYLENOL [Concomitant]
  10. VITAMIN D [Concomitant]
  11. ASCORBIC ACID [Concomitant]

REACTIONS (1)
  - DEATH [None]
